FAERS Safety Report 8553741-9 (Version None)
Quarter: 2012Q3

REPORT INFORMATION
  Report Type: 
  Country: None (occurrence: None)
  Receive Date: 20120731
  Receipt Date: 20120723
  Transmission Date: 20120928
  Serious: Yes (Hospitalization)
  Sender: FDA-Public Use
  Company Number: US-GLAXOSMITHKLINE-A0888775A

PATIENT
  Age: 53 Year
  Sex: Male
  Weight: 96.4 kg

DRUGS (4)
  1. INSULIN [Concomitant]
  2. ACCUPRIL [Concomitant]
  3. LIPITOR [Concomitant]
  4. AVANDIA [Suspect]
     Indication: DIABETES MELLITUS
     Dosage: 4MG IN THE MORNING
     Route: 048
     Dates: start: 20010517

REACTIONS (3)
  - CORONARY ARTERY DISEASE [None]
  - CARDIAC FAILURE CONGESTIVE [None]
  - MYOCARDIAL INFARCTION [None]
